FAERS Safety Report 8539349-X (Version None)
Quarter: 2012Q3

REPORT INFORMATION
  Report Type: 
  Country: None (occurrence: None)
  Receive Date: 20120726
  Receipt Date: 20110722
  Transmission Date: 20120928
  Serious: No
  Sender: FDA-Public Use
  Company Number: US-ASTRAZENECA-2011SE44199

PATIENT
  Age: 56 Year
  Sex: Female

DRUGS (3)
  1. LYRICA [Concomitant]
     Indication: FIBROMYALGIA
  2. CLONAZEPAM [Concomitant]
  3. SEROQUEL XR [Suspect]
     Route: 048

REACTIONS (10)
  - MAJOR DEPRESSION [None]
  - ATTENTION DEFICIT/HYPERACTIVITY DISORDER [None]
  - ARTHRITIS [None]
  - HYPERINSULINAEMIA [None]
  - PAIN [None]
  - OSTEOARTHRITIS [None]
  - IMPAIRED GASTRIC EMPTYING [None]
  - FIBROMYALGIA [None]
  - NEUROPATHY PERIPHERAL [None]
  - FATIGUE [None]
